FAERS Safety Report 7489039-X (Version None)
Quarter: 2011Q2

REPORT INFORMATION
  Report Type: 
  Country: None (occurrence: None)
  Receive Date: 20110518
  Receipt Date: 20110510
  Transmission Date: 20111010
  Serious: Yes (Death, Other)
  Sender: FDA-Public Use
  Company Number: US-CELGENEUS-163-21880-11051292

PATIENT
  Sex: Male

DRUGS (12)
  1. RISPERIDONE [Concomitant]
     Route: 065
  2. CITALOPRAM [Concomitant]
     Route: 065
  3. ACYCLOVIR [Concomitant]
     Route: 065
  4. REVLIMID [Suspect]
     Indication: MULTIPLE MYELOMA
     Dosage: 25 MILLIGRAM
     Route: 048
     Dates: start: 20090901, end: 20091201
  5. PROCRIT [Concomitant]
     Route: 065
  6. HYOSCYAMINE [Concomitant]
     Route: 065
  7. LACTULOSE [Concomitant]
     Route: 065
  8. NYSTATIN [Concomitant]
     Route: 065
  9. FOLIC ACID [Concomitant]
     Route: 065
  10. BACLOFEN [Concomitant]
     Route: 065
  11. GABAPENTIN [Concomitant]
     Route: 065
  12. SIMVASTATIN [Concomitant]
     Route: 065

REACTIONS (4)
  - DEEP VEIN THROMBOSIS [None]
  - MULTIPLE MYELOMA [None]
  - DEATH [None]
  - DYSPNOEA [None]
